FAERS Safety Report 10056719 (Version 1)
Quarter: 2014Q2

REPORT INFORMATION
  Report Type: Spontaneous
  Country: GB (occurrence: GB)
  Receive Date: 20140403
  Receipt Date: 20140403
  Transmission Date: 20141212
  Serious: Yes (Life-Threatening, Hospitalization)
  Sender: FDA-Public Use
  Company Number: GB-SA-2014SA036840

PATIENT
  Age: 83 Year
  Sex: Male
  Weight: 93 kg

DRUGS (10)
  1. CLOPIDOGREL BISULFATE [Suspect]
     Indication: STENT PLACEMENT
     Route: 048
     Dates: start: 2012, end: 201401
  2. WARFARIN [Suspect]
     Indication: ATRIAL FIBRILLATION
     Route: 065
     Dates: end: 201312
  3. ASPIRIN [Concomitant]
  4. ATORVASTATIN [Concomitant]
  5. BISOPROLOL [Concomitant]
  6. DIGOXIN [Concomitant]
  7. FUROSEMIDE [Concomitant]
  8. PERINDOPRIL [Concomitant]
  9. RANITIDINE [Concomitant]
  10. SPIRONOLACTONE [Concomitant]

REACTIONS (6)
  - Splenic rupture [Unknown]
  - Acquired haemophilia [Not Recovered/Not Resolved]
  - Haematuria [Unknown]
  - Haemarthrosis [Unknown]
  - Haematoma [Not Recovered/Not Resolved]
  - Fall [Unknown]
